FAERS Safety Report 8920608 (Version 4)
Quarter: 2013Q1

REPORT INFORMATION
  Report Type: Report from Study
  Country: RU (occurrence: RU)
  Receive Date: 20121122
  Receipt Date: 20130102
  Transmission Date: 20140127
  Serious: Yes (Life-Threatening, Hospitalization)
  Sender: FDA-Public Use
  Company Number: RU-SANOFI-AVENTIS-2012SA085691

PATIENT
  Age: 66 Year
  Sex: Male
  Weight: 96 kg

DRUGS (12)
  1. CABAZITAXEL [Suspect]
     Indication: PROSTATE CANCER
     Route: 042
     Dates: start: 20121030, end: 20121030
  2. PREDNISOLONE [Suspect]
     Indication: PROSTATE CANCER
     Route: 048
     Dates: start: 20121030, end: 20121116
  3. GRANOCYTE [Concomitant]
     Indication: PROPHYLAXIS
     Route: 023
     Dates: start: 20121030, end: 20121030
  4. GRANOCYTE [Concomitant]
     Indication: PROPHYLAXIS
     Route: 023
     Dates: start: 20121107, end: 20121107
  5. GRANOCYTE [Concomitant]
     Indication: PROPHYLAXIS
     Route: 023
     Dates: start: 20121109, end: 20121109
  6. GRANOCYTE [Concomitant]
     Indication: PROPHYLAXIS
     Route: 023
     Dates: start: 20121111, end: 20121111
  7. GRANOCYTE [Concomitant]
     Indication: PROPHYLAXIS
     Route: 023
     Dates: start: 20121113, end: 20121113
  8. RANITIDINE [Concomitant]
     Route: 040
     Dates: start: 20121107, end: 20121113
  9. DEXAMETHASONE [Concomitant]
     Route: 040
     Dates: start: 20121107, end: 20121113
  10. CLEMASTINE [Concomitant]
     Route: 040
     Dates: start: 20121107, end: 20121113
  11. ONDANSETRON [Concomitant]
     Route: 040
     Dates: start: 20121107, end: 20121113
  12. CEFEPIME [Concomitant]
     Route: 040
     Dates: start: 20121107, end: 20121113

REACTIONS (1)
  - Intestinal haemorrhage [Recovered/Resolved]
